FAERS Safety Report 4318260-4 (Version None)
Quarter: 2004Q1

REPORT INFORMATION
  Report Type: 
  Country: None (occurrence: None)
  Receive Date: 20040315
  Receipt Date: 20040123
  Transmission Date: 20041129
  Serious: No
  Sender: FDA-Public Use
  Company Number: 2004196107US

PATIENT
  Age: 80 Year
  Sex: Female

DRUGS (1)
  1. BEXTRA [Suspect]
     Indication: PAIN
     Dosage: 10 MG
     Dates: start: 20040122

REACTIONS (1)
  - FEELING ABNORMAL [None]
